FAERS Safety Report 23594973 (Version 4)
Quarter: 2025Q1

REPORT INFORMATION
  Report Type: Report from Study
  Country: CA (occurrence: CA)
  Receive Date: 20240305
  Receipt Date: 20250219
  Transmission Date: 20250408
  Serious: Yes (Hospitalization)
  Sender: ROCHE
  Company Number: CA-ROCHE-3518544

PATIENT
  Age: 32 Year
  Sex: Female
  Weight: 51.0 kg

DRUGS (5)
  1. ACTEMRA [Suspect]
     Active Substance: TOCILIZUMAB
     Indication: Still^s disease
     Route: 040
     Dates: start: 20240202, end: 20240228
  2. ACTEMRA [Suspect]
     Active Substance: TOCILIZUMAB
     Route: 040
  3. AMOXICILLIN [Concomitant]
     Active Substance: AMOXICILLIN
  4. DESONIDE [Concomitant]
     Active Substance: DESONIDE
     Indication: Dry skin
  5. FLUOXETINE [Concomitant]
     Active Substance: FLUOXETINE HYDROCHLORIDE

REACTIONS (4)
  - Pneumonia [Unknown]
  - Hypotension [Unknown]
  - Off label use [Unknown]
  - Juvenile idiopathic arthritis [Unknown]

NARRATIVE: CASE EVENT DATE: 20240222
